FAERS Safety Report 6390930-6 (Version None)
Quarter: 2009Q4

REPORT INFORMATION
  Report Type: 
  Country: None (occurrence: None)
  Receive Date: 20091003
  Receipt Date: 20090918
  Transmission Date: 20100525
  Serious: Yes (Hospitalization, Disabling, Other)
  Sender: FDA-Public Use
  Company Number: 2009AL005084

PATIENT
  Age: 61 Year
  Sex: Male

DRUGS (7)
  1. CITALOPRAM HYDROBROMIDE [Suspect]
     Indication: DEPRESSION
     Dosage: 20 MG; QD; UNK
     Dates: start: 20061003, end: 20090701
  2. LOSARTAN POSTASSIUM [Concomitant]
  3. ATORVASTATIN [Concomitant]
  4. ASPIRIN [Concomitant]
  5. CHLORPHENIRAMINE MALEATE [Concomitant]
  6. DIAZEPAM [Concomitant]
  7. ZOPICLONE [Concomitant]

REACTIONS (5)
  - AFFECTIVE DISORDER [None]
  - CHOKING SENSATION [None]
  - ERECTILE DYSFUNCTION [None]
  - FEELING OF DESPAIR [None]
  - SUICIDE ATTEMPT [None]
